FAERS Safety Report 10075653 (Version 1)
Quarter: 2014Q2

REPORT INFORMATION
  Report Type: Spontaneous
  Country: JP (occurrence: JP)
  Receive Date: 20140414
  Receipt Date: 20140414
  Transmission Date: 20141212
  Serious: Yes (Hospitalization)
  Sender: FDA-Public Use
  Company Number: JP-MYLANLABS-2014S1008055

PATIENT
  Age: 48 Year
  Sex: Female

DRUGS (2)
  1. EPIRUBICIN [Suspect]
     Indication: BREAST CANCER
     Route: 041
  2. ENDOXAN [Suspect]
     Indication: BREAST CANCER
     Route: 041

REACTIONS (1)
  - Hepatitis B [Recovered/Resolved]
